FAERS Safety Report 8080498-0 (Version None)
Quarter: 2012Q1

REPORT INFORMATION
  Report Type: 
  Country: None (occurrence: None)
  Receive Date: 20120130
  Receipt Date: 20120124
  Transmission Date: 20120608
  Serious: Yes (Other)
  Sender: FDA-Public Use
  Company Number: US-PFIZER INC-2012022819

PATIENT
  Sex: Male

DRUGS (2)
  1. AVELOX [Suspect]
     Dosage: UNK
  2. TIKOSYN [Suspect]
     Dosage: 250 UG, UNK
     Dates: start: 20100101

REACTIONS (1)
  - ELECTROCARDIOGRAM QT PROLONGED [None]
